FAERS Safety Report 4494852-7 (Version None)
Quarter: 2004Q4

REPORT INFORMATION
  Report Type: 
  Country: None (occurrence: None)
  Receive Date: 20041103
  Receipt Date: 20041018
  Transmission Date: 20050328
  Serious: Yes (Death)
  Sender: FDA-Public Use
  Company Number: 2004-BP-10037RA

PATIENT
  Age: 56 Year
  Sex: Male

DRUGS (2)
  1. SIFROL TABLETS (TA) (PRAMIPEXOLE) [Suspect]
     Indication: PARKINSON'S DISEASE
     Dosage: 1 MG PO
     Route: 048
     Dates: start: 20030301, end: 20040618
  2. LEBOCAR (SINEMET) [Concomitant]

REACTIONS (1)
  - MYOCARDIAL INFARCTION [None]
